FAERS Safety Report 6665934-6 (Version None)
Quarter: 2010Q2

REPORT INFORMATION
  Report Type: 
  Country: None (occurrence: None)
  Receive Date: 20100402
  Receipt Date: 20100308
  Transmission Date: 20101027
  Serious: No
  Sender: FDA-Public Use
  Company Number: US-ROXANE LABORATORIES, INC.-2010-RO-00247RO

PATIENT
  Sex: Female

DRUGS (1)
  1. BALSALAZIDE [Suspect]
     Indication: IRRITABLE BOWEL SYNDROME
     Dosage: 1500 MG
     Route: 048

REACTIONS (1)
  - DRUG INEFFECTIVE [None]
